FAERS Safety Report 14946597 (Version 1)
Quarter: 2018Q2

REPORT INFORMATION
  Report Type: Spontaneous
  Country: PL (occurrence: PL)
  Receive Date: 20180529
  Receipt Date: 20180529
  Transmission Date: 20180711
  Serious: Yes (Hospitalization, Other)
  Sender: FDA-Public Use
  Company Number: PL-AUROBINDO-AUR-APL-2018-027912

PATIENT

DRUGS (2)
  1. INSULIN [Concomitant]
     Active Substance: INSULIN NOS
     Indication: TYPE 2 DIABETES MELLITUS
     Dosage: 100 TO 250 MG/DL, UNKNOWN FREQ.
     Route: 065
  2. AMOXICILLIN+CLAVULANIC ACID [Suspect]
     Active Substance: AMOXICILLIN\CLAVULANIC ACID
     Indication: PNEUMONIA
     Dosage: UNK UNK, UNKNOWN FREQ.
     Route: 065

REACTIONS (7)
  - Pneumonia pneumococcal [Unknown]
  - Drug ineffective [Unknown]
  - Cardiac failure [Recovered/Resolved]
  - Acinetobacter bacteraemia [Unknown]
  - Clostridium difficile infection [Unknown]
  - Lung disorder [Unknown]
  - Citrobacter infection [Unknown]
